FAERS Safety Report 8740188 (Version 2)
Quarter: 2013Q4

REPORT INFORMATION
  Report Type: Spontaneous
  Country: US (occurrence: US)
  Receive Date: 20120823
  Receipt Date: 20131101
  Transmission Date: 20140711
  Serious: No
  Sender: FDA-Public Use
  Company Number: US-009507513-1208USA002003

PATIENT
  Sex: Female

DRUGS (1)
  1. IMPLANON [Suspect]
     Dosage: 1 ROD, INSERTED FOR 3 YEARS
     Route: 059
     Dates: start: 20120717, end: 20120718

REACTIONS (2)
  - Feeling abnormal [Recovered/Resolved]
  - Device expulsion [Unknown]
